FAERS Safety Report 10013827 (Version 1)
Quarter: 2014Q1

REPORT INFORMATION
  Report Type: Spontaneous
  Country: US (occurrence: US)
  Receive Date: 20140316
  Receipt Date: 20140316
  Transmission Date: 20141002
  Serious: No
  Sender: FDA-Public Use
  Company Number: US-009507513-1403USA004092

PATIENT
  Sex: Female

DRUGS (4)
  1. NEXPLANON [Suspect]
     Indication: CONTRACEPTION
     Dosage: UNK
     Route: 059
     Dates: start: 20131021
  2. TOPAMAX [Concomitant]
  3. ABILIFY [Concomitant]
  4. TRILEPTAL [Concomitant]

REACTIONS (1)
  - Back pain [Unknown]
